FAERS Safety Report 8099368-7 (Version None)
Quarter: 2012Q1

REPORT INFORMATION
  Report Type: 
  Country: None (occurrence: None)
  Receive Date: 20120129
  Receipt Date: 20111025
  Transmission Date: 20120608
  Serious: Yes (Hospitalization)
  Sender: FDA-Public Use
  Company Number: US-ABBOTT-11P-163-0866909-00

PATIENT
  Sex: Male

DRUGS (1)
  1. HUMIRA [Suspect]
     Indication: PSORIATIC ARTHROPATHY
     Dates: start: 20110620, end: 20110901

REACTIONS (5)
  - HEADACHE [None]
  - VERTIGO [None]
  - VIRAL INFECTION [None]
  - PSORIASIS [None]
  - DIZZINESS [None]
